FAERS Safety Report 22098086 (Version 3)
Quarter: 2024Q2

REPORT INFORMATION
  Report Type: Report from Study
  Country: ES (occurrence: ES)
  Receive Date: 20230315
  Receipt Date: 20240412
  Transmission Date: 20240715
  Serious: Yes (Hospitalization, Other)
  Sender: FDA-Public Use
  Company Number: None

PATIENT
  Age: 69 Year
  Sex: Male
  Weight: 72 kg

DRUGS (30)
  1. CARBOPLATIN [Suspect]
     Active Substance: CARBOPLATIN
     Indication: Small cell lung cancer extensive stage
     Dates: start: 20220411
  2. ETOPOSIDE [Suspect]
     Active Substance: ETOPOSIDE
     Indication: Small cell lung cancer extensive stage
     Dates: start: 20220411
  3. ATEZOLIZUMAB [Suspect]
     Active Substance: ATEZOLIZUMAB
     Indication: Small cell lung cancer extensive stage
     Dosage: LAST DOSE OF ATEZOLIZUMAB ADMINISTERED
     Dates: start: 20220411
  4. OLMESARTAN MEDOXOMIL [Concomitant]
     Active Substance: OLMESARTAN MEDOXOMIL
  5. PREDNISONE [Concomitant]
     Active Substance: PREDNISONE
     Dates: start: 20221031, end: 20221229
  6. ABSTRAL [Concomitant]
     Active Substance: FENTANYL CITRATE
  7. ONDANSETRON [Concomitant]
     Active Substance: ONDANSETRON
     Indication: Premedication
     Dates: start: 20220411, end: 20220620
  8. OMEPRAZOLE [Concomitant]
     Active Substance: OMEPRAZOLE
     Dates: start: 20220408
  9. IVABRADINE [Concomitant]
     Active Substance: IVABRADINE
  10. FENTANYL [Concomitant]
     Active Substance: FENTANYL\FENTANYL CITRATE
  11. DEXAMETHASONE [Concomitant]
     Active Substance: DEXAMETHASONE
     Indication: Premedication
     Dates: start: 20220411, end: 20220622
  12. LORAZEPAM [Concomitant]
     Active Substance: LORAZEPAM
  13. ACETAMINOPHEN\TRAMADOL [Concomitant]
     Active Substance: ACETAMINOPHEN\TRAMADOL
  14. OLMESARTAN [Concomitant]
     Active Substance: OLMESARTAN
     Dates: start: 20220427, end: 20220427
  15. IPRATROPIUM BROMIDE [Concomitant]
     Active Substance: IPRATROPIUM BROMIDE\IPRATROPIUM BROMIDE ANHYDROUS
     Dates: start: 20231128, end: 20231201
  16. ENOXAPARIN [Concomitant]
     Active Substance: ENOXAPARIN
     Indication: Tachycardia
     Dates: start: 20191220, end: 20221229
  17. LEVOFLOXACIN [Concomitant]
     Active Substance: LEVOFLOXACIN
     Indication: Prophylaxis
     Dates: start: 20220429, end: 20220504
  18. METHYLPREDNISOLONE [Concomitant]
     Active Substance: METHYLPREDNISOLONE
     Dates: start: 20231128, end: 20231129
  19. ACETYLCYSTEINE [Concomitant]
     Active Substance: ACETYLCYSTEINE
     Dates: start: 20231130, end: 20231201
  20. MAGNESIUM [Concomitant]
     Active Substance: MAGNESIUM
     Dates: start: 20220427, end: 20220429
  21. MICOSTATIN [Concomitant]
     Dates: start: 20220429
  22. NYSTATIN [Concomitant]
     Active Substance: NYSTATIN
     Dosage: UNK, QD
     Dates: start: 20220425, end: 20220429
  23. AZTREONAM [Concomitant]
     Active Substance: AZTREONAM
     Indication: Product used for unknown indication
     Dates: start: 20220425, end: 20220429
  24. ACETAMINOPHEN [Concomitant]
     Active Substance: ACETAMINOPHEN
     Dates: start: 20231128, end: 20231129
  25. OLMESARTAN [Concomitant]
     Active Substance: OLMESARTAN
     Dates: start: 20220425, end: 20220425
  26. PREDNISONE [Concomitant]
     Active Substance: PREDNISONE
     Dates: end: 20230828
  27. ENOXAPARIN [Concomitant]
     Active Substance: ENOXAPARIN
     Indication: Tachycardia
     Dates: start: 20191220, end: 20221229
  28. ENOXAPARIN [Concomitant]
     Active Substance: ENOXAPARIN
     Indication: Tachycardia
     Dates: start: 20191128, end: 20221201
  29. LEVOFLOXACIN [Concomitant]
     Active Substance: LEVOFLOXACIN
     Indication: Prophylaxis
     Dates: start: 20220411, end: 20220715
  30. ENOXAPARIN [Concomitant]
     Active Substance: ENOXAPARIN
     Indication: Tachycardia
     Dates: start: 20231128, end: 20231201

REACTIONS (11)
  - Diarrhoea [Recovered/Resolved]
  - Cough [Recovered/Resolved]
  - Neutropenia [Recovered/Resolved]
  - Febrile neutropenia [Recovered/Resolved]
  - Candida infection [Recovered/Resolved]
  - Infection [Recovered/Resolved]
  - Paraesthesia [Not Recovered/Not Resolved]
  - Cyanosis [Not Recovered/Not Resolved]
  - Mucosal inflammation [Recovered/Resolved]
  - Myalgia [Recovered/Resolved]
  - Tachycardia [Recovered/Resolved]

NARRATIVE: CASE EVENT DATE: 20220425
